FAERS Safety Report 18491700 (Version 1)
Quarter: 2020Q4

REPORT INFORMATION
  Report Type: Spontaneous
  Country: DE (occurrence: DE)
  Receive Date: 20201111
  Receipt Date: 20201111
  Transmission Date: 20210114
  Serious: Yes (Hospitalization)
  Sender: FDA-Public Use
  Company Number: DE-PFIZER INC-2020442369

PATIENT
  Age: 72 Year
  Sex: Female
  Weight: 96 kg

DRUGS (11)
  1. SPIRONOLACTONE. [Suspect]
     Active Substance: SPIRONOLACTONE
     Dosage: 0.5-0-0-0, TABLETS
     Route: 048
  2. SITAGLIPTIN [Suspect]
     Active Substance: SITAGLIPTIN
     Dosage: 100 MG, 1X/DAY (1-0-0-0, TABLETS)
     Route: 048
  3. METFORMIN [Suspect]
     Active Substance: METFORMIN HYDROCHLORIDE
     Dosage: 950 MG, 2X/DAY (1-0-1-0, TABLETS)
     Route: 048
  4. TORASEMIDE [Suspect]
     Active Substance: TORSEMIDE
     Dosage: 10 MG, 1X/DAY (1-0-0-0, TABLETS)
     Route: 048
  5. IBUPROFEN. [Suspect]
     Active Substance: IBUPROFEN
     Dosage: 600 MG, 1X/DAY (1-0-0-0, TABLETS)
     Route: 048
  6. PEGINTERFERON ALFA-2B [Suspect]
     Active Substance: PEGINTERFERON ALFA-2B
     Dosage: 0.13 MG (16022020, AMPOULES)
     Route: 058
  7. ARTIST [Suspect]
     Active Substance: CARVEDILOL
     Dosage: 0.25 MG, 2X/DAY (1-0-1-0, TABLETS)
     Route: 048
  8. AMLODIPINE BESILATE [Suspect]
     Active Substance: AMLODIPINE BESYLATE
     Dosage: 10 MG, 1X/DAY (1-0-0-0, TABLETS)
     Route: 048
  9. GABAPENTIN. [Suspect]
     Active Substance: GABAPENTIN
     Dosage: 100 MG, 2X/DAY (1-1-0-0, CAPSULES)
     Route: 048
  10. CANDESARTAN. [Suspect]
     Active Substance: CANDESARTAN
     Dosage: 16 MG, 1X/DAY (0-0-1-0, TABLETS)
     Route: 048
  11. DULOXETINE. [Suspect]
     Active Substance: DULOXETINE
     Dosage: 60 MG, 1X/DAY (1-0-0-0, CAPSULES)
     Route: 048

REACTIONS (5)
  - Gamma-glutamyltransferase increased [Unknown]
  - Nausea [Unknown]
  - General physical health deterioration [Unknown]
  - Glomerular filtration rate decreased [Unknown]
  - Dizziness [Unknown]

NARRATIVE: CASE EVENT DATE: 20200212
